FAERS Safety Report 20198031 (Version 1)
Quarter: 2021Q4

REPORT INFORMATION
  Report Type: Spontaneous
  Country: US (occurrence: US)
  Receive Date: 20211217
  Receipt Date: 20211217
  Transmission Date: 20220303
  Serious: No
  Sender: FDA-Public Use
  Company Number: US-ALLERGAN-2118219US

PATIENT
  Age: 72 Year
  Sex: Female
  Weight: 52.16 kg

DRUGS (1)
  1. PREDNISOLONE ACETATE [Suspect]
     Active Substance: PREDNISOLONE ACETATE
     Indication: Intraocular pressure test abnormal
     Dosage: 2 GTT, BID

REACTIONS (4)
  - Product dispensing error [Unknown]
  - Off label use [Unknown]
  - Product packaging quantity issue [Unknown]
  - Product label issue [Unknown]

NARRATIVE: CASE EVENT DATE: 20210506
